FAERS Safety Report 18331983 (Version 1)
Quarter: 2020Q4

REPORT INFORMATION
  Report Type: Spontaneous
  Country: DE (occurrence: DE)
  Receive Date: 20201001
  Receipt Date: 20201001
  Transmission Date: 20210113
  Serious: Yes (Hospitalization, Other)
  Sender: FDA-Public Use
  Company Number: DE-SHILPA MEDICARE LIMITED-SML-DE-2020-00333

PATIENT
  Age: 35 Year
  Sex: Male
  Weight: 78 kg

DRUGS (13)
  1. ENOXAPARIN [Concomitant]
     Active Substance: ENOXAPARIN
     Route: 058
     Dates: start: 20190510, end: 20190513
  2. LORAZEPAM. [Concomitant]
     Active Substance: LORAZEPAM
     Indication: RESTLESSNESS
     Dosage: UNK, PRN
     Route: 048
     Dates: start: 20190325, end: 20190327
  3. ENOXAPARIN [Concomitant]
     Active Substance: ENOXAPARIN
     Indication: THROMBOSIS PROPHYLAXIS
     Dosage: UNK
     Route: 058
     Dates: start: 20190322, end: 20190326
  4. NOVAMINSULFON-RATIOPHARM [Concomitant]
     Active Substance: METAMIZOLE
     Indication: INJECTION SITE PAIN
     Dosage: UNK
     Route: 048
     Dates: start: 20190513
  5. APLONA [Concomitant]
     Indication: DIARRHOEA
     Dosage: UNK
     Route: 048
     Dates: start: 20190511, end: 20190513
  6. TADALAFIL. [Suspect]
     Active Substance: TADALAFIL
     Route: 048
     Dates: start: 20190322
  7. OPSUMIT [Suspect]
     Active Substance: MACITENTAN
     Indication: PULMONARY ARTERIAL HYPERTENSION
     Dosage: 10 MG, QD
     Route: 048
     Dates: start: 20190325
  8. LOPERAMIDE HYDROCHLORIDE. [Concomitant]
     Active Substance: LOPERAMIDE HYDROCHLORIDE
     Indication: DIARRHOEA
     Dosage: UNK UNK, PRN
     Route: 048
     Dates: start: 20190513
  9. IMATINIB, UNKNOWN [Suspect]
     Active Substance: IMATINIB
     Indication: PRODUCT USED FOR UNKNOWN INDICATION
     Route: 065
  10. CLEXANE [Concomitant]
     Active Substance: ENOXAPARIN SODIUM
     Indication: THROMBOSIS PROPHYLAXIS
     Dosage: UNK
     Route: 058
     Dates: start: 20190814, end: 20190818
  11. ESOMEPRAZOLE. [Concomitant]
     Active Substance: ESOMEPRAZOLE MAGNESIUM
     Indication: PROPHYLAXIS
     Dosage: UNK
     Route: 048
     Dates: start: 20190509
  12. APIXABAN [Concomitant]
     Active Substance: APIXABAN
     Indication: THROMBOSIS PROPHYLAXIS
     Dosage: UNK
     Route: 048
     Dates: start: 20190327, end: 20190502
  13. TADALAFIL. [Suspect]
     Active Substance: TADALAFIL
     Indication: PRODUCT USED FOR UNKNOWN INDICATION
     Route: 048
     Dates: start: 20190326

REACTIONS (21)
  - Catheterisation cardiac [Recovered/Resolved]
  - Arthralgia [Not Recovered/Not Resolved]
  - Dyspnoea [Recovered/Resolved]
  - C-reactive protein increased [Recovered/Resolved]
  - Therapy partial responder [Unknown]
  - Periorbital oedema [Unknown]
  - Creatinine renal clearance abnormal [Recovered/Resolved]
  - Right ventricular failure [Unknown]
  - Cough [Recovered/Resolved]
  - Pneumonia [Recovered/Resolved]
  - Pyrexia [Recovered/Resolved]
  - Procedural pain [Not Recovered/Not Resolved]
  - Drug delivery device placement [Not Recovered/Not Resolved]
  - Dyspnoea exertional [Unknown]
  - Brain natriuretic peptide increased [Unknown]
  - Headache [Not Recovered/Not Resolved]
  - Sleep disorder [Recovered/Resolved]
  - Diarrhoea [Not Recovered/Not Resolved]
  - Pulmonary arterial hypertension [Unknown]
  - Renal failure [Recovered/Resolved]
  - Oedema peripheral [Recovered/Resolved]

NARRATIVE: CASE EVENT DATE: 20190502
